FAERS Safety Report 20460823 (Version 1)
Quarter: 2022Q1

REPORT INFORMATION
  Report Type: Spontaneous
  Country: GB (occurrence: None)
  Receive Date: 20220211
  Receipt Date: 20220211
  Transmission Date: 20220424
  Serious: Yes (Life-Threatening)
  Sender: FDA-Public Use
  Company Number: 2022A060244

PATIENT
  Age: 21 Year
  Sex: Female
  Weight: 77 kg

DRUGS (3)
  1. SYMBICORT [Suspect]
     Active Substance: BUDESONIDE\FORMOTEROL FUMARATE DIHYDRATE
     Dosage: 100/6 MCG 2 DF DAILY
     Route: 055
     Dates: start: 20220125, end: 20220202
  2. FLUOXETINE [Concomitant]
     Active Substance: FLUOXETINE HYDROCHLORIDE
     Indication: Anxiety disorder
     Dosage: 20 DOSE 30 UNIT
     Dates: start: 20211209
  3. MODERNA COVID-19 VACCINE [Concomitant]
     Active Substance: ELASOMERAN
     Indication: COVID-19 immunisation
     Dosage: 1 DOSE 30 UNITS
     Route: 030
     Dates: start: 20211221, end: 20211221

REACTIONS (3)
  - Paraesthesia oral [Unknown]
  - Drug hypersensitivity [Recovered/Resolved]
  - Pharyngeal swelling [Unknown]

NARRATIVE: CASE EVENT DATE: 20220125
